FAERS Safety Report 7552830-5 (Version None)
Quarter: 2011Q2

REPORT INFORMATION
  Report Type: 
  Country: None (occurrence: None)
  Receive Date: 20110616
  Receipt Date: 20110609
  Transmission Date: 20111010
  Serious: Yes (Disabling, Other)
  Sender: FDA-Public Use
  Company Number: BR-PFIZER INC-2011098725

PATIENT
  Age: 81 Year
  Sex: Female
  Weight: 52 kg

DRUGS (2)
  1. VARENICLINE TARTRATE [Suspect]
     Indication: TOBACCO USER
     Dosage: UNK
     Route: 048
     Dates: start: 20110429, end: 20110101
  2. VARENICLINE TARTRATE [Suspect]
     Dosage: 1 MG, ONCE DAILY
     Route: 048
     Dates: start: 20110101, end: 20110101

REACTIONS (4)
  - VOMITING [None]
  - FEELING ABNORMAL [None]
  - DEPRESSION [None]
  - TOOTH DISORDER [None]
